FAERS Safety Report 11070377 (Version 3)
Quarter: 2015Q2

REPORT INFORMATION
  Report Type: Report from Study
  Country: PL (occurrence: PL)
  Receive Date: 20150427
  Receipt Date: 20150528
  Transmission Date: 20150821
  Serious: Yes (Other)
  Sender: FDA-Public Use
  Company Number: PHHY2015PL036835

PATIENT
  Age: 54 Year
  Sex: Female

DRUGS (1)
  1. AFINITOR [Suspect]
     Active Substance: EVEROLIMUS
     Indication: PANCREATIC NEUROENDOCRINE TUMOUR
     Dosage: 10 MG
     Route: 048
     Dates: start: 20140415

REACTIONS (22)
  - Portal vein stenosis [Unknown]
  - Fluid retention [Unknown]
  - Hepatic lesion [Unknown]
  - Neoplasm [Unknown]
  - Uterine enlargement [Unknown]
  - Adrenal gland cancer [Unknown]
  - Malignant neoplasm progression [Unknown]
  - Arteriosclerosis [Unknown]
  - Pelvic fluid collection [Unknown]
  - Pericardial effusion [Unknown]
  - Metastases to liver [Unknown]
  - Drug ineffective [Unknown]
  - Uterine leiomyoma [Unknown]
  - Spleen disorder [Unknown]
  - Lymphadenopathy [Unknown]
  - Hepatomegaly [Unknown]
  - Lung infiltration [Unknown]
  - Bone fragmentation [Unknown]
  - Pancreatic neuroendocrine tumour metastatic [Unknown]
  - Peripheral venous disease [Unknown]
  - Second primary malignancy [Unknown]
  - Renal cyst [Unknown]

NARRATIVE: CASE EVENT DATE: 20140709
